FAERS Safety Report 10201467 (Version 2)
Quarter: 2018Q2

REPORT INFORMATION
  Report Type: Report from Study
  Country: US (occurrence: US)
  Receive Date: 20140528
  Receipt Date: 20180625
  Transmission Date: 20180711
  Serious: Yes (Other)
  Sender: FDA-Public Use
  Company Number: US-ASTELLAS-2014US005899

PATIENT

DRUGS (3)
  1. DALOTUZUMAB [Suspect]
     Active Substance: DALOTUZUMAB
     Indication: PANCREATIC CARCINOMA
     Dosage: 5 OR 10 MG/KG, WEEKLY X 4, OVER 60 MIN, ONCE WEEKLY
     Route: 065
  2. GEMCITABINE [Suspect]
     Active Substance: GEMCITABINE\GEMCITABINE HYDROCHLORIDE
     Indication: PANCREATIC CARCINOMA
     Dosage: 1000 MG/M2, ONCE WEEKLY (OVER 100 MIN, WEEKLY X 3)
     Route: 065
  3. ERLOTINIB [Suspect]
     Active Substance: ERLOTINIB
     Indication: PANCREATIC CARCINOMA
     Route: 048

REACTIONS (20)
  - Anaemia [Unknown]
  - Pulmonary embolism [Unknown]
  - Aspartate aminotransferase increased [Unknown]
  - Nausea [Unknown]
  - Leukopenia [Unknown]
  - International normalised ratio increased [Unknown]
  - Decreased appetite [Unknown]
  - Hyperglycaemia [Unknown]
  - Febrile neutropenia [Unknown]
  - Hyponatraemia [Unknown]
  - Thrombosis [Unknown]
  - Diarrhoea [Unknown]
  - Transaminases increased [Unknown]
  - Alanine aminotransferase increased [Unknown]
  - Neutropenia [Unknown]
  - Lymphopenia [Unknown]
  - Dermatitis acneiform [Unknown]
  - Fatigue [Unknown]
  - Thrombocytopenia [Unknown]
  - Infection [Unknown]
